FAERS Safety Report 18527661 (Version 1)
Quarter: 2020Q4

REPORT INFORMATION
  Report Type: Spontaneous
  Country: US (occurrence: US)
  Receive Date: 20201120
  Receipt Date: 20201120
  Transmission Date: 20210114
  Serious: Yes (Death)
  Sender: FDA-Public Use
  Company Number: US-PFIZER INC-2020455427

PATIENT
  Age: 59 Year
  Sex: Male
  Weight: 68.04 kg

DRUGS (2)
  1. PREDNISONE. [Concomitant]
     Active Substance: PREDNISONE
     Indication: DYSPNOEA
     Dosage: UNK
  2. GABAPENTIN. [Suspect]
     Active Substance: GABAPENTIN
     Indication: LIMB DISCOMFORT
     Dosage: UNK

REACTIONS (7)
  - Swelling [Unknown]
  - Blood glucose fluctuation [Unknown]
  - Immune system disorder [Unknown]
  - Weight increased [Unknown]
  - Chronic obstructive pulmonary disease [Fatal]
  - Lung disorder [Unknown]
  - Off label use [Unknown]
